FAERS Safety Report 7738523-X (Version None)
Quarter: 2011Q3

REPORT INFORMATION
  Report Type: 
  Country: None (occurrence: None)
  Receive Date: 20110908
  Receipt Date: 20110901
  Transmission Date: 20111222
  Serious: Yes (Other)
  Sender: FDA-Public Use
  Company Number: US-AMGEN-USASP2011044894

PATIENT
  Sex: Female

DRUGS (6)
  1. TRAMADOL HYDROCHLORIDE [Concomitant]
     Dosage: UNK MG, UNK
  2. DIGOXIN [Concomitant]
     Dosage: UNK MUG, UNK
  3. PLAQUENIL [Concomitant]
     Dosage: UNK MG, UNK
  4. ENBREL [Suspect]
     Indication: RHEUMATOID ARTHRITIS
     Dosage: 50 MG, QWK
     Dates: start: 20100101
  5. COUMADIN [Concomitant]
     Dosage: UNK MG, UNK
  6. TOPROL-XL [Concomitant]
     Dosage: UNK MG, UNK

REACTIONS (5)
  - ABDOMINAL PAIN UPPER [None]
  - DYSPNOEA [None]
  - HYPOAESTHESIA [None]
  - PARAESTHESIA [None]
  - ASTHENIA [None]
